FAERS Safety Report 4815173-6 (Version None)
Quarter: 2005Q4

REPORT INFORMATION
  Report Type: 
  Country: None (occurrence: None)
  Receive Date: 20051028
  Receipt Date: 20050722
  Transmission Date: 20060501
  Serious: Yes (Other)
  Sender: FDA-Public Use
  Company Number: US-MERCK-0507USA03828

PATIENT
  Age: 30 Year
  Sex: Female
  Weight: 87 kg

DRUGS (18)
  1. VIOXX [Suspect]
     Indication: CARPAL TUNNEL SYNDROME
     Route: 048
     Dates: start: 20000730, end: 20020301
  2. VIOXX [Suspect]
     Indication: BACK PAIN
     Route: 048
     Dates: start: 20000730, end: 20020301
  3. PREMARIN [Concomitant]
     Route: 065
  4. [THERAPY UNSPECIFIED] [Concomitant]
     Route: 065
  5. MEDROXYPROGESTERONE ACETATE [Concomitant]
     Route: 065
  6. NEURONTIN [Concomitant]
     Route: 065
  7. TRAZODONE HYDROCHLORIDE [Concomitant]
     Route: 065
  8. ZITHROMAX [Concomitant]
     Route: 065
  9. AMITRIPTYLINE HYDROCHLORIDE [Concomitant]
     Route: 065
  10. BACLOFEN [Concomitant]
     Route: 065
  11. [THERAPY UNSPECIFIED] [Concomitant]
     Route: 065
  12. OXYCODONE AND ACETAMINOPHEN [Concomitant]
     Route: 065
  13. KETOCONAZOLE [Concomitant]
     Route: 065
  14. KETOROLAC TROMETHAMINE [Concomitant]
     Route: 065
  15. PANNAZ (NEW FORMULA) [Concomitant]
     Route: 065
  16. SPORANOX [Concomitant]
     Route: 065
  17. ZANAFLEX [Concomitant]
     Route: 065
  18. NASONEX [Concomitant]
     Route: 065

REACTIONS (15)
  - BLOOD CHOLESTEROL INCREASED [None]
  - CARDIAC MURMUR [None]
  - CARDIAC VALVE DISEASE [None]
  - CARDIOMYOPATHY [None]
  - CARPAL TUNNEL SYNDROME [None]
  - FIBROMYALGIA [None]
  - GALLBLADDER DISORDER [None]
  - GASTRIC DISORDER [None]
  - HAEMORRHAGE [None]
  - HYSTERECTOMY [None]
  - LARYNGITIS [None]
  - MYOCARDIAL INFARCTION [None]
  - OEDEMA PERIPHERAL [None]
  - PAIN IN EXTREMITY [None]
  - RESPIRATORY TRACT INFECTION [None]
